FAERS Safety Report 8491814-X (Version None)
Quarter: 2012Q3

REPORT INFORMATION
  Report Type: 
  Country: None (occurrence: None)
  Receive Date: 20120706
  Receipt Date: 20120626
  Transmission Date: 20120928
  Serious: Yes (Other)
  Sender: FDA-Public Use
  Company Number: US-JNJFOC-20120700023

PATIENT
  Age: 67 Year
  Sex: Female
  Weight: 102.97 kg

DRUGS (5)
  1. MULTI-VITAMINS [Concomitant]
     Indication: MEDICAL DIET
     Dosage: 4-5 YEARS
     Route: 065
  2. FISH OIL [Concomitant]
     Indication: MEDICAL DIET
     Route: 065
     Dates: start: 20110101
  3. FOSINOPRIL SODIUM [Concomitant]
     Indication: HYPERTENSION
     Route: 065
     Dates: start: 20120602
  4. EXTRA STRENGTH TYLENOL [Suspect]
     Indication: HEADACHE
     Dosage: TOOK 2 IN THE AM, AND 2 AT 1AM
     Route: 048
     Dates: start: 20120625, end: 20120626
  5. INVEGA [Concomitant]
     Indication: MENTAL DISORDER
     Route: 065
     Dates: start: 20070101

REACTIONS (3)
  - INSOMNIA [None]
  - DRUG INEFFECTIVE [None]
  - BLOOD PRESSURE INCREASED [None]
